FAERS Safety Report 12758393 (Version 1)
Quarter: 2016Q3

REPORT INFORMATION
  Report Type: Spontaneous
  Country: US (occurrence: US)
  Receive Date: 20160917
  Receipt Date: 20160917
  Transmission Date: 20161109
  Serious: Yes (Other)
  Sender: FDA-Public Use
  Company Number: None

PATIENT
  Age: 58 Year
  Sex: Female
  Weight: 96.75 kg

DRUGS (28)
  1. RANITIDINE. [Concomitant]
     Active Substance: RANITIDINE
  2. BYSTOLIC [Concomitant]
     Active Substance: NEBIVOLOL HYDROCHLORIDE
  3. BUPROPION XL [Suspect]
     Active Substance: BUPROPION
  4. BUSPIRONE [Concomitant]
     Active Substance: BUSPIRONE HYDROCHLORIDE
  5. CROMLYN SOD [Concomitant]
  6. BENICAR [Concomitant]
     Active Substance: OLMESARTAN MEDOXOMIL
  7. VIIBRYD [Concomitant]
     Active Substance: VILAZODONE HYDROCHLORIDE
  8. RASNEPRINE [Concomitant]
  9. ALBUTORAL [Concomitant]
  10. ALLEGRA [Concomitant]
     Active Substance: FEXOFENADINE HYDROCHLORIDE
  11. IBUPROFEN. [Concomitant]
     Active Substance: IBUPROFEN
  12. EXTRA ESTROGEN/MTEST [Concomitant]
  13. HYDROXYZINE HCL [Concomitant]
     Active Substance: HYDROXYZINE HYDROCHLORIDE
  14. VITAMIN D 3 [Concomitant]
  15. ARMODAFINIL. [Suspect]
     Active Substance: ARMODAFINIL
     Indication: SLEEP APNOEA SYNDROME
     Route: 048
     Dates: start: 20160620, end: 20160917
  16. KETOFIN [Concomitant]
  17. VITAMIN B12 [Concomitant]
     Active Substance: CYANOCOBALAMIN
  18. GLUTOSE GEL [Concomitant]
  19. BENADRYL [Concomitant]
     Active Substance: DIPHENHYDRAMINE HYDROCHLORIDE
  20. NUVIGIL [Concomitant]
     Active Substance: ARMODAFINIL
  21. SINGULAIR [Concomitant]
     Active Substance: MONTELUKAST SODIUM
  22. SPIRONOLACTONE. [Concomitant]
     Active Substance: SPIRONOLACTONE
  23. FOLIC ACID. [Concomitant]
     Active Substance: FOLIC ACID
  24. ASPIRIN. [Concomitant]
     Active Substance: ASPIRIN
  25. NOBOLOGNA [Concomitant]
  26. EPIPEN [Concomitant]
     Active Substance: EPINEPHRINE
  27. PLAQONIL [Concomitant]
  28. GLUCOSE [Concomitant]
     Active Substance: DEXTROSE

REACTIONS (5)
  - Product substitution issue [None]
  - Nausea [None]
  - Insomnia [None]
  - Headache [None]
  - Abdominal distension [None]

NARRATIVE: CASE EVENT DATE: 20160620
